FAERS Safety Report 10038722 (Version 2)
Quarter: 2014Q1

REPORT INFORMATION
  Report Type: Report from Study
  Country: US (occurrence: US)
  Receive Date: 20140326
  Receipt Date: 20140326
  Transmission Date: 20141002
  Serious: Yes (Hospitalization)
  Sender: FDA-Public Use
  Company Number: US-ACTELION-A-US2014-95435

PATIENT
  Age: 40 Year
  Sex: Female

DRUGS (4)
  1. VELETRI [Suspect]
     Indication: COR PULMONALE CHRONIC
     Dosage: 27 NG/KG, UNK
     Route: 042
     Dates: start: 20130213
  2. VELETRI [Suspect]
     Dosage: 22 NG/KG, PER MIN
     Route: 042
     Dates: start: 20130318
  3. LETAIRIS [Concomitant]
  4. RIOCIGUAT [Concomitant]

REACTIONS (2)
  - Pneumonia [Unknown]
  - Bronchitis [Unknown]
